FAERS Safety Report 11963336 (Version 1)
Quarter: 2016Q1

REPORT INFORMATION
  Report Type: Spontaneous
  Country: US (occurrence: None)
  Receive Date: 20160122
  Receipt Date: 20160122
  Transmission Date: 20160526
  Serious: Yes (Other)
  Sender: FDA-Public Use
  Company Number: None

PATIENT
  Age: 48 Year
  Sex: Female
  Weight: 79.38 kg

DRUGS (12)
  1. VITAMIN D [Concomitant]
     Active Substance: CHOLECALCIFEROL
  2. OCELLA [Concomitant]
     Active Substance: DROSPIRENONE\ETHINYL ESTRADIOL
  3. VENLAFAXINE [Concomitant]
     Active Substance: VENLAFAXINE HYDROCHLORIDE
  4. VITAMIN C [Concomitant]
     Active Substance: ASCORBIC ACID
  5. CALCIUM [Concomitant]
     Active Substance: CALCIUM
  6. VALERIAN ROOT [Concomitant]
     Active Substance: VALERIAN
  7. DEXTROAMPHETAMINE 10MG COREPHARMA [Suspect]
     Active Substance: DEXTROAMPHETAMINE
     Indication: ATTENTION DEFICIT/HYPERACTIVITY DISORDER
     Dosage: 1 PILL
     Route: 048
     Dates: start: 20160112, end: 20160115
  8. DEXTROAMPHETAMINE 10MG COREPHARMA [Suspect]
     Active Substance: DEXTROAMPHETAMINE
     Indication: SOMNOLENCE
     Dosage: 1 PILL
     Route: 048
     Dates: start: 20160112, end: 20160115
  9. ADVAIR HFA [Concomitant]
     Active Substance: FLUTICASONE PROPIONATE\SALMETEROL XINAFOATE
  10. DEXILANT [Concomitant]
     Active Substance: DEXLANSOPRAZOLE
  11. FISH OIL [Concomitant]
     Active Substance: FISH OIL
  12. ATROVENT [Concomitant]
     Active Substance: IPRATROPIUM BROMIDE

REACTIONS (4)
  - Dizziness [None]
  - Product substitution issue [None]
  - Feeling abnormal [None]
  - Drug ineffective [None]

NARRATIVE: CASE EVENT DATE: 20160114
